FAERS Safety Report 5892810-9 (Version None)
Quarter: 2008Q3

REPORT INFORMATION
  Report Type: 
  Country: None (occurrence: None)
  Receive Date: 20080922
  Receipt Date: 20080922
  Transmission Date: 20090109
  Serious: Yes (Hospitalization)
  Sender: FDA-Public Use
  Company Number: None

PATIENT
  Sex: Male
  Weight: 112.4921 kg

DRUGS (2)
  1. CLINDAMYCIN HCL [Suspect]
     Indication: PHLEBITIS
     Dosage: 3 PILLS 4 TIMES DAILY PO
     Route: 048
     Dates: start: 20080907, end: 20080909
  2. CLINDAMYCIN HCL [Suspect]
     Indication: PHLEBITIS
     Dosage: 3 PILLS 4 TIMES DAILY PO
     Route: 048
     Dates: start: 20080909, end: 20080912

REACTIONS (1)
  - HYPERSENSITIVITY [None]
